FAERS Safety Report 17157913 (Version 1)
Quarter: 2019Q4

REPORT INFORMATION
  Report Type: Spontaneous
  Country: US (occurrence: US)
  Receive Date: 20191213
  Receipt Date: 20191213
  Transmission Date: 20200122
  Serious: Yes (Disabling)
  Sender: FDA-Public Use
  Company Number: None

PATIENT
  Age: 65 Year
  Sex: Female
  Weight: 55.35 kg

DRUGS (2)
  1. TRAZODONE [Concomitant]
     Active Substance: TRAZODONE HYDROCHLORIDE
  2. HARVONI [Suspect]
     Active Substance: LEDIPASVIR\SOFOSBUVIR
     Indication: HEPATITIS C
     Dosage: ?          QUANTITY:1 TABLET(S);?
     Route: 048

REACTIONS (14)
  - Weight decreased [None]
  - Basal cell carcinoma [None]
  - Hypophagia [None]
  - Skin infection [None]
  - Depression [None]
  - Tinnitus [None]
  - Feeling abnormal [None]
  - Headache [None]
  - Fatigue [None]
  - Dyspepsia [None]
  - Neuropathy peripheral [None]
  - Back pain [None]
  - Dermatitis [None]
  - Precancerous skin lesion [None]

NARRATIVE: CASE EVENT DATE: 20160525
